FAERS Safety Report 5364923-1 (Version None)
Quarter: 2007Q2

REPORT INFORMATION
  Report Type: 
  Country: None (occurrence: None)
  Receive Date: 20070530
  Receipt Date: 20070110
  Transmission Date: 20071010
  Serious: No
  Sender: FDA-Public Use
  Company Number: 2007PV028218

PATIENT
  Age: 57 Year
  Sex: Male
  Weight: 88.4514 kg

DRUGS (5)
  1. BYETTA [Suspect]
     Indication: DIABETES MELLITUS NON-INSULIN-DEPENDENT
     Dosage: 10 MCG BID SC ; 5 MCG BID SC
     Route: 058
     Dates: start: 20061008, end: 20061107
  2. BYETTA [Suspect]
     Indication: DIABETES MELLITUS NON-INSULIN-DEPENDENT
     Dosage: 10 MCG BID SC ; 5 MCG BID SC
     Route: 058
     Dates: start: 20061108
  3. NOVOLOG [Concomitant]
  4. LANTUS [Concomitant]
  5. GLUCOPHAGE [Concomitant]

REACTIONS (3)
  - BLOOD GLUCOSE DECREASED [None]
  - BLOOD GLUCOSE INCREASED [None]
  - WEIGHT DECREASED [None]
